FAERS Safety Report 10243306 (Version 2)
Quarter: 2014Q3

REPORT INFORMATION
  Report Type: Report from Study
  Country: FR (occurrence: FR)
  Receive Date: 20140618
  Receipt Date: 20140819
  Transmission Date: 20150326
  Serious: Yes (Hospitalization, Other)
  Sender: FDA-Public Use
  Company Number: PHHY2014FR072916

PATIENT
  Age: 50 Year
  Sex: Female

DRUGS (3)
  1. AMSALYO [Suspect]
     Active Substance: AMSACRINE
     Indication: ACUTE LEUKAEMIA
     Dosage: 150 MG/M2, 1 X PER DAY
     Dates: start: 20101019, end: 20101023
  2. ETOPOSIDE. [Suspect]
     Active Substance: ETOPOSIDE
     Indication: ACUTE LEUKAEMIA
     Dosage: 150 MG/M2, ONCE A DAY
     Route: 042
     Dates: start: 20101019, end: 20101023
  3. EXJADE [Suspect]
     Active Substance: DEFERASIROX
     Indication: IRON OVERLOAD
     Dosage: UNK UKN, UNK

REACTIONS (6)
  - Cell death [Unknown]
  - Cholestasis [Unknown]
  - Abdominal pain [Recovered/Resolved]
  - Escherichia test positive [Unknown]
  - Colonic pseudo-obstruction [Unknown]
  - Impaired gastric emptying [Unknown]

NARRATIVE: CASE EVENT DATE: 20101218
